FAERS Safety Report 5958261-3 (Version None)
Quarter: 2008Q4

REPORT INFORMATION
  Report Type: 
  Country: None (occurrence: None)
  Receive Date: 20081119
  Receipt Date: 20081112
  Transmission Date: 20090506
  Serious: Yes (Other)
  Sender: FDA-Public Use
  Company Number: US-BAYER-200838417NA

PATIENT
  Sex: Male

DRUGS (3)
  1. NEXAVAR [Suspect]
     Indication: LUNG NEOPLASM MALIGNANT
     Dosage: TOTAL DAILY DOSE: 200 MG  UNIT DOSE: 200 MG
     Route: 048
     Dates: start: 20080801, end: 20081001
  2. TARCEVA [Concomitant]
  3. SODIUM BENABUTERATE (NOS) [Concomitant]

REACTIONS (2)
  - DYSPNOEA [None]
  - ORAL DISCOMFORT [None]
